FAERS Safety Report 5236539-9 (Version None)
Quarter: 2007Q1

REPORT INFORMATION
  Report Type: 
  Country: None (occurrence: None)
  Receive Date: 20070208
  Receipt Date: 20070130
  Transmission Date: 20070707
  Serious: Yes (Death, Hospitalization, Other)
  Sender: FDA-Public Use
  Company Number: 107566ISR

PATIENT
  Age: 60 Year
  Sex: Male

DRUGS (6)
  1. METHOTREXATE [Suspect]
     Indication: RHEUMATOID ARTHRITIS
     Dosage: 25 MG/ML (25 MG/ML, ONCE A WEEK)
     Dates: start: 20040408
  2. CALCIUM CARBONATE [Concomitant]
  3. MELOXICAM [Concomitant]
  4. FAMOTIDINE [Concomitant]
  5. FOLIC ACID [Concomitant]
  6. ACETYLSALICYLIC ACID SRT [Concomitant]

REACTIONS (4)
  - ACUTE MYELOID LEUKAEMIA [None]
  - MYELODYSPLASTIC SYNDROME [None]
  - PANCREATIC CARCINOMA [None]
  - PHOTOSENSITIVITY REACTION [None]
